FAERS Safety Report 4323609-2 (Version None)
Quarter: 2004Q1

REPORT INFORMATION
  Report Type: 
  Country: None (occurrence: None)
  Receive Date: 20040322
  Receipt Date: 20040311
  Transmission Date: 20041129
  Serious: Yes (Other)
  Sender: FDA-Public Use
  Company Number: GB-JNJFOC-20040302616

PATIENT
  Age: 66 Year
  Sex: Female

DRUGS (8)
  1. REMICADE [Suspect]
     Indication: RHEUMATOID ARTHRITIS
     Dosage: INTRAVENOUS
     Route: 042
     Dates: start: 20021105, end: 20040201
  2. PLAQUENIL [Concomitant]
  3. PREDNISOLONE [Concomitant]
  4. COVERSYL (PERINDOPRIL) [Concomitant]
  5. SULFASALAZINE [Concomitant]
  6. BENDROFLUAZIDE (BENDROFLUMETHIAZIDE) [Concomitant]
  7. BISOPROLOL FUMARATE [Concomitant]
  8. CO-PROXAMOL (APOREX) [Concomitant]

REACTIONS (1)
  - BREAST CANCER [None]
